FAERS Safety Report 5151954-X (Version None)
Quarter: 2006Q4

REPORT INFORMATION
  Report Type: 
  Country: None (occurrence: None)
  Receive Date: 20061109
  Receipt Date: 20061027
  Transmission Date: 20070319
  Serious: Yes (Hospitalization)
  Sender: FDA-Public Use
  Company Number: 2006131195

PATIENT
  Age: 36 Year
  Sex: Female
  Weight: 40 kg

DRUGS (7)
  1. DIFLUCAN [Suspect]
     Dates: start: 20040323
  2. EPIVIR [Suspect]
     Indication: HIV TEST POSITIVE
     Dosage: 300 MG (150 MG), ORAL
     Route: 048
     Dates: start: 20040101
  3. ZERIT [Suspect]
     Indication: HIV TEST POSITIVE
     Dosage: 30 MG (30 MG), ORAL
     Route: 048
     Dates: start: 20040101
  4. KALETRA [Suspect]
     Indication: HIV TEST POSITIVE
     Dosage: FREQUENCY: DAILY, ORAL
     Route: 048
     Dates: start: 20040101
  5. FOSCAVIR [Suspect]
     Dosage: 6 GRAM (2.4 GRAM), ORAL
     Route: 048
     Dates: start: 20040318
  6. SULFAMETHOXAZOLE AND TRIMETHOPRIM [Suspect]
     Dosage: 1 TAB, ORAL
     Route: 048
     Dates: start: 20040101
  7. BOREA (MEGESTROL ACETATE) [Concomitant]

REACTIONS (1)
  - HALLUCINATION [None]
